FAERS Safety Report 9222576 (Version 1)
Quarter: 2013Q1

REPORT INFORMATION
  Report Type: Spontaneous
  Country: DE (occurrence: None)
  Receive Date: 20120914
  Receipt Date: 20120914
  Transmission Date: 20140127
  Serious: Yes (Hospitalization, Other)
  Sender: FDA-Public Use
  Company Number: JPI-P-021439

PATIENT
  Age: 78 Year
  Sex: Female

DRUGS (7)
  1. XYREM [Suspect]
     Indication: CATAPLEXY
     Dosage: 6 ML (3 ML, 2 IN 1 D), ORAL
     Route: 048
     Dates: start: 20081204
  2. BENSERAZIDE HYDROCHLORIDE [Suspect]
     Indication: RESTLESS LEGS SYNDROME
     Dates: start: 20120412
  3. VENLAFAXINE HYDROCHLORIDE [Concomitant]
  4. CLOMIPRAMINE [Concomitant]
  5. CLONAZEPAM [Concomitant]
  6. FLUOXETINE [Concomitant]
  7. MODAFINIL [Concomitant]

REACTIONS (11)
  - Clavicle fracture [None]
  - Confusional state [None]
  - Gait disturbance [None]
  - Fall [None]
  - Anxiety [None]
  - Middle insomnia [None]
  - Dyskinesia [None]
  - Rapid eye movements sleep abnormal [None]
  - Restless legs syndrome [None]
  - Condition aggravated [None]
  - Cataplexy [None]
